FAERS Safety Report 8862363 (Version 1)
Quarter: 2012Q4

REPORT INFORMATION
  Report Type: 
  Country: US (occurrence: US)
  Receive Date: 20121026
  Receipt Date: 20121026
  Transmission Date: 20130627
  Serious: Yes (Hospitalization)
  Sender: FDA-Public Use
  Company Number: US-BAYER-2012-112408

PATIENT
  Age: 25 Year
  Sex: Female

DRUGS (2)
  1. YASMIN [Suspect]
  2. TAMIFLU [Concomitant]
     Dosage: 75 mg, UNK
     Route: 048
     Dates: start: 20050205

REACTIONS (2)
  - Pulmonary embolism [Recovered/Resolved]
  - Pelvic venous thrombosis [Recovered/Resolved]
